FAERS Safety Report 9345657 (Version 1)
Quarter: 2013Q2

REPORT INFORMATION
  Report Type: Spontaneous
  Country: US (occurrence: US)
  Receive Date: 20130613
  Receipt Date: 20130613
  Transmission Date: 20140414
  Serious: No
  Sender: FDA-Public Use
  Company Number: US-FOUGERA-2012FO001101

PATIENT
  Sex: Female

DRUGS (2)
  1. HYDROCORTISONE [Suspect]
     Indication: DERMATITIS ALLERGIC
  2. HYDROCORTISONE [Suspect]
     Indication: VASCULAR GRAFT COMPLICATION

REACTIONS (1)
  - Drug ineffective [Unknown]
